FAERS Safety Report 18958592 (Version 5)
Quarter: 2023Q4

REPORT INFORMATION
  Report Type: Report from Study
  Country: US (occurrence: US)
  Receive Date: 20210302
  Receipt Date: 20231011
  Transmission Date: 20240109
  Serious: Yes (Hospitalization)
  Sender: FDA-Public Use
  Company Number: US-TAKEDA-US202010373

PATIENT
  Age: 40 Year
  Sex: Female

DRUGS (1)
  1. HUMAN IMMUNOGLOBULIN G [Suspect]
     Active Substance: HUMAN IMMUNOGLOBULIN G
     Indication: Primary immunodeficiency syndrome
     Dosage: UNK
     Route: 042

REACTIONS (10)
  - Cholelithiasis [Unknown]
  - Musculoskeletal stiffness [Unknown]
  - Road traffic accident [Unknown]
  - Mobility decreased [Unknown]
  - Brain fog [Recovering/Resolving]
  - Abdominal pain upper [Unknown]
  - Fatigue [Unknown]
  - Muscle spasms [Unknown]
  - Dizziness [Recovering/Resolving]
  - Inappropriate schedule of product administration [Unknown]

NARRATIVE: CASE EVENT DATE: 20201201
